FAERS Safety Report 4284102-9 (Version None)
Quarter: 2004Q1

REPORT INFORMATION
  Report Type: 
  Country: None (occurrence: None)
  Receive Date: 20040203
  Receipt Date: 20040129
  Transmission Date: 20041129
  Serious: Yes (Other)
  Sender: FDA-Public Use
  Company Number: 200410235DE

PATIENT
  Age: 47 Year
  Sex: Male
  Weight: 50 kg

DRUGS (13)
  1. ARAVA [Suspect]
     Dates: start: 20021001, end: 20030601
  2. PEGASYS [Suspect]
     Route: 058
     Dates: start: 20020815, end: 20030826
  3. REBETOL [Suspect]
     Dosage: DOSE: MAX 4
     Dates: start: 20020815, end: 20030601
  4. OXYGESIC [Concomitant]
     Dates: start: 19990601, end: 20030826
  5. AZULFIDINE [Concomitant]
     Dates: start: 19970101, end: 20030826
  6. KATADOLON [Concomitant]
     Dates: start: 19990601, end: 20030826
  7. FOSAMAX [Concomitant]
     Dates: start: 19990601, end: 20030826
  8. ACC [Concomitant]
     Dates: start: 19970101, end: 20030826
  9. THOMAPYRIN [Concomitant]
     Dosage: DOSE: 1 - 2
     Dates: start: 19950101, end: 19970101
  10. NOVALGIN [Concomitant]
     Dates: start: 19970101, end: 19990101
  11. CORTISONE ACETATE [Concomitant]
     Dates: start: 19970301, end: 19990101
  12. CALCIUM [Concomitant]
     Dosage: FREQUENCY: IRREGULAR
     Dates: start: 19990601, end: 20030826
  13. VIGANTOLETTEN [Concomitant]
     Dates: start: 20000801, end: 20030826

REACTIONS (2)
  - APLASTIC ANAEMIA [None]
  - BONE MARROW TOXICITY [None]
